FAERS Safety Report 24853781 (Version 1)
Quarter: 2025Q1

REPORT INFORMATION
  Report Type: Report from Study
  Country: CA (occurrence: CA)
  Receive Date: 20250117
  Receipt Date: 20250117
  Transmission Date: 20250409
  Serious: Yes (Other)
  Sender: JOHNSON AND JOHNSON
  Company Number: CA-JNJFOC-20250116604

PATIENT
  Age: 15 Year
  Sex: Male
  Weight: 99 kg

DRUGS (4)
  1. REMICADE [Suspect]
     Active Substance: INFLIXIMAB
     Indication: Crohn^s disease
     Route: 041
     Dates: start: 20190306, end: 20250108
  2. REMICADE [Suspect]
     Active Substance: INFLIXIMAB
     Route: 041
  3. CELEXA [Concomitant]
     Active Substance: CITALOPRAM HYDROBROMIDE
  4. Biphen [Concomitant]

REACTIONS (6)
  - Crohn^s disease [Unknown]
  - Gastroenteritis viral [Recovered/Resolved]
  - Drug specific antibody [Unknown]
  - Drug level decreased [Unknown]
  - Drug ineffective [Unknown]
  - Off label use [Unknown]

NARRATIVE: CASE EVENT DATE: 20190306
